FAERS Safety Report 9193026 (Version 2)
Quarter: 2013Q2

REPORT INFORMATION
  Report Type: Spontaneous
  Country: CO (occurrence: CO)
  Receive Date: 20130327
  Receipt Date: 20130404
  Transmission Date: 20140414
  Serious: Yes (Death)
  Sender: FDA-Public Use
  Company Number: PHHY2013CO029649

PATIENT
  Age: 52 Year
  Sex: Female

DRUGS (3)
  1. AFINITOR [Suspect]
     Indication: NEUROENDOCRINE TUMOUR
     Dosage: 10 MG, UNK
     Route: 048
     Dates: start: 20120924
  2. MORPHINE [Concomitant]
  3. ACETAMINOPHEN [Concomitant]

REACTIONS (1)
  - Cardiac arrest [Fatal]
